FAERS Safety Report 14391004 (Version 2)
Quarter: 2018Q2

REPORT INFORMATION
  Report Type: Spontaneous
  Country: US (occurrence: US)
  Receive Date: 20180116
  Receipt Date: 20180507
  Transmission Date: 20180711
  Serious: No
  Sender: FDA-Public Use
  Company Number: US-PFIZER INC-2018009125

PATIENT
  Age: 73 Year
  Sex: Female
  Weight: 73.62 kg

DRUGS (2)
  1. DOCETAXEL. [Suspect]
     Active Substance: DOCETAXEL
     Indication: BREAST CANCER FEMALE
     Dosage: UNK
     Dates: start: 20140723, end: 20140923
  2. DOCETAXEL. [Suspect]
     Active Substance: DOCETAXEL
     Dosage: UNK, EVERY THREE WEEKS THENEVERY TWO WEEKS WITH 4 CYCLES

REACTIONS (1)
  - Alopecia [Not Recovered/Not Resolved]
